FAERS Safety Report 17531296 (Version 1)
Quarter: 2020Q1

REPORT INFORMATION
  Report Type: Spontaneous
  Country: GB (occurrence: GB)
  Receive Date: 20200312
  Receipt Date: 20200312
  Transmission Date: 20200409
  Serious: Yes (Life-Threatening)
  Sender: FDA-Public Use
  Company Number: GB-BAXTER-2020BAX004918

PATIENT
  Age: 78 Year
  Sex: Male

DRUGS (1)
  1. GLUCOSE 5% INTRAVENOUS INFUSION BP [Suspect]
     Active Substance: DEXTROSE
     Indication: DEHYDRATION
     Route: 042
     Dates: start: 20200120, end: 20200120

REACTIONS (4)
  - Dyspnoea [Recovered/Resolved]
  - Wheezing [Recovered/Resolved]
  - Tachypnoea [Recovered/Resolved]
  - Pruritus [Recovered/Resolved]

NARRATIVE: CASE EVENT DATE: 20200120
